FAERS Safety Report 9109563 (Version 3)
Quarter: 2014Q1

REPORT INFORMATION
  Report Type: Spontaneous
  Country: US (occurrence: US)
  Receive Date: 20130222
  Receipt Date: 20140205
  Transmission Date: 20141002
  Serious: Yes (Hospitalization, Disabling, Other)
  Sender: FDA-Public Use
  Company Number: US-MERCK-1302USA008757

PATIENT
  Sex: Female

DRUGS (11)
  1. FOSAMAX [Suspect]
     Indication: OSTEOPOROSIS
     Dosage: 10 MG, QD
     Route: 048
     Dates: start: 20000126, end: 200110
  2. FOSAMAX [Suspect]
     Dosage: 70 MG, QW
     Route: 048
     Dates: start: 200110, end: 200403
  3. FOSAMAX [Suspect]
     Dosage: 70 MG, QW
     Route: 048
     Dates: start: 20060803, end: 20080424
  4. ALENDRONATE SODIUM [Suspect]
     Indication: OSTEOPOROSIS
     Dosage: 70 MG, QW
     Route: 048
     Dates: start: 20080424, end: 20090831
  5. CALCIUM (UNSPECIFIED) [Concomitant]
     Dosage: 600 MG, QD
     Dates: start: 1980
  6. VITAMIN D (UNSPECIFIED) [Concomitant]
     Dosage: 400 MG, QD
     Dates: start: 1980
  7. VITAMINS (UNSPECIFIED) [Concomitant]
     Dosage: 1 DF, QD
     Dates: start: 1980
  8. OMEGA-3 MARINE TRIGLYCERIDES [Concomitant]
     Dosage: 1 DF, QD
     Dates: start: 1980
  9. GLUCOSAMINE [Concomitant]
     Dosage: 1 DF, QD
     Dates: start: 1980
  10. SYNTHROID [Concomitant]
     Indication: THYROID DISORDER
     Dosage: UNK
     Dates: start: 1990, end: 2006
  11. LEVOTHYROXINE SODIUM [Concomitant]
     Indication: THYROID DISORDER
     Dosage: UNK
     Dates: start: 2006

REACTIONS (7)
  - Femur fracture [Not Recovered/Not Resolved]
  - Intramedullary rod insertion [Unknown]
  - Intramedullary rod insertion [Unknown]
  - Femur fracture [Unknown]
  - Anxiety [Unknown]
  - Fibula fracture [Unknown]
  - Gastrointestinal motility disorder [Unknown]
